FAERS Safety Report 21317318 (Version 1)
Quarter: 2022Q3

REPORT INFORMATION
  Report Type: Spontaneous
  Country: US (occurrence: US)
  Receive Date: 20220911
  Receipt Date: 20220911
  Transmission Date: 20221026
  Serious: No
  Sender: FDA-Public Use
  Company Number: US-SA-SAC20220824000383

PATIENT
  Age: 60 Year
  Sex: Male
  Weight: 77 kg

DRUGS (2)
  1. DUPIXENT [Suspect]
     Active Substance: DUPILUMAB
     Indication: Nasal polyps
     Dosage: 2 DF
     Route: 058
     Dates: start: 20220623, end: 20220623
  2. DUPIXENT [Suspect]
     Active Substance: DUPILUMAB
     Dosage: 2 DF QOW
     Route: 058
     Dates: start: 20220707

REACTIONS (10)
  - Upper-airway cough syndrome [Unknown]
  - Respiratory tract congestion [Unknown]
  - Eyelid margin crusting [Unknown]
  - Feeling abnormal [Unknown]
  - Lethargy [Unknown]
  - Nausea [Unknown]
  - Dry eye [Unknown]
  - Arthralgia [Unknown]
  - Extra dose administered [Unknown]
  - Product use in unapproved indication [Unknown]

NARRATIVE: CASE EVENT DATE: 20220601
